FAERS Safety Report 7488974-6 (Version None)
Quarter: 2011Q1

REPORT INFORMATION
  Report Type: 
  Country: None (occurrence: None)
  Receive Date: 20110316
  Receipt Date: 20101104
  Transmission Date: 20110831
  Serious: Yes (Other)
  Sender: FDA-Public Use
  Company Number: 10-001598

PATIENT
  Age: 59 Year
  Sex: Female
  Weight: 62.1 kg

DRUGS (6)
  1. CLIMARA [Suspect]
     Indication: MENOPAUSAL SYMPTOMS
     Dates: start: 19970101, end: 20070101
  2. LEVOTHYROXINE SODIUM [Concomitant]
  3. VITAMIN E (TOCOPHERYL ACETATE) [Concomitant]
  4. ASCORBIC ACID [Concomitant]
  5. ESTRACE [Suspect]
     Indication: VULVOVAGINAL DRYNESS
     Dosage: EVERY OTHER DAY, VAGINAL
     Route: 067
     Dates: start: 20020101, end: 20070101
  6. TOPROL-XL [Concomitant]

REACTIONS (1)
  - BREAST CANCER [None]
